FAERS Safety Report 6310631-X (Version None)
Quarter: 2009Q3

REPORT INFORMATION
  Report Type: 
  Country: None (occurrence: None)
  Receive Date: 20090814
  Receipt Date: 20090807
  Transmission Date: 20100115
  Serious: Yes (Hospitalization)
  Sender: FDA-Public Use
  Company Number: CA-ALLERGAN-0910993US

PATIENT
  Age: 55 Year
  Sex: Male
  Weight: 139.5 kg

DRUGS (11)
  1. BOTULINUM TOXIN TYPE A [Suspect]
     Indication: NEUROGENIC BLADDER
     Dosage: UNK
     Route: 030
     Dates: start: 20081007, end: 20081007
  2. BLINDED PLACEBO [Suspect]
     Indication: NEUROGENIC BLADDER
     Dosage: UNK
     Route: 030
     Dates: start: 20081007, end: 20081007
  3. BOTOX [Suspect]
     Indication: NEUROGENIC BLADDER
     Dosage: UNK
     Route: 030
     Dates: start: 20090623, end: 20090623
  4. CELEBREX [Concomitant]
     Indication: ARTHRALGIA
     Dosage: 200 MG, QD
     Route: 048
     Dates: start: 20010101
  5. FLOMAX [Concomitant]
     Indication: HYPERTONIC BLADDER
     Dosage: 4 MG, QD
     Route: 048
     Dates: start: 20080701
  6. DILAUDID [Concomitant]
     Indication: ARTHRALGIA
     Dosage: 2 MG, PRN
     Route: 048
     Dates: start: 20070801
  7. BUDESONIDE [Concomitant]
     Indication: HEARING IMPAIRED
     Dosage: 64 A?G, PRN
     Route: 048
     Dates: start: 20050601
  8. TEMAZEPAM [Concomitant]
     Indication: INSOMNIA
     Dosage: 15 MG, PRN
     Route: 048
     Dates: start: 20030101
  9. VENTOLIN [Concomitant]
     Indication: ASTHMA
     Dosage: 1-2 PUFFS
     Route: 055
     Dates: start: 20061201
  10. METHYLPHENIDATE HCL [Concomitant]
     Indication: TENSION
     Dosage: 20 MG, QD
     Route: 048
     Dates: start: 20090429
  11. CIPROFLOXACIN [Concomitant]
     Indication: URINARY RETENTION
     Dosage: 1000 MG, QD
     Route: 048
     Dates: start: 20090723, end: 20090801

REACTIONS (1)
  - URINARY RETENTION [None]
